FAERS Safety Report 8425640-4 (Version None)
Quarter: 2012Q2

REPORT INFORMATION
  Report Type: 
  Country: None (occurrence: None)
  Receive Date: 20120611
  Receipt Date: 20120604
  Transmission Date: 20120825
  Serious: Yes (Other)
  Sender: FDA-Public Use
  Company Number: PHHY2012BR049080

PATIENT
  Sex: Male
  Weight: 70 kg

DRUGS (2)
  1. HYDREA [Concomitant]
  2. EXJADE [Suspect]
     Indication: SICKLE CELL ANAEMIA
     Dosage: 1500 MG A DAY
     Route: 048
     Dates: start: 20100101

REACTIONS (1)
  - BONE PAIN [None]
